FAERS Safety Report 17920373 (Version 6)
Quarter: 2020Q4

REPORT INFORMATION
  Report Type: Report from Study
  Country: MX (occurrence: MX)
  Receive Date: 20200620
  Receipt Date: 20201212
  Transmission Date: 20210113
  Serious: Yes (Life-Threatening, Other)
  Sender: FDA-Public Use
  Company Number: PHHY2019MX056601

PATIENT
  Age: 48 Year
  Sex: Female
  Weight: 68 kg

DRUGS (8)
  1. EXFORGE HCT [Suspect]
     Active Substance: AMLODIPINE BESYLATE\HYDROCHLOROTHIAZIDE\VALSARTAN
     Dosage: 0.5 DF, QD
     Route: 048
     Dates: start: 201804
  2. LORATADINE. [Concomitant]
     Active Substance: LORATADINE
     Indication: HYPERSENSITIVITY
     Dosage: 1 DF, QD (SEVERAL YEARS AGO)
     Route: 048
  3. EXFORGE HCT [Suspect]
     Active Substance: AMLODIPINE BESYLATE\HYDROCHLOROTHIAZIDE\VALSARTAN
     Indication: HYPERTENSION
     Dosage: 1 DF, QD
     Route: 048
     Dates: start: 201804
  4. EXFORGE HCT [Suspect]
     Active Substance: AMLODIPINE BESYLATE\HYDROCHLOROTHIAZIDE\VALSARTAN
     Dosage: 0.5 DF, QD (2 YEARS AGO)
     Route: 048
  5. EXFORGE HCT [Suspect]
     Active Substance: AMLODIPINE BESYLATE\HYDROCHLOROTHIAZIDE\VALSARTAN
     Dosage: 1 DF, QD
     Route: 048
  6. OMEPRAZOLE. [Concomitant]
     Active Substance: OMEPRAZOLE
     Indication: CHRONIC GASTRITIS
     Dosage: 40 MG, QD
     Route: 048
     Dates: start: 201009
  7. OMEPRAZOLE. [Concomitant]
     Active Substance: OMEPRAZOLE
     Dosage: 20 MG, QD (03 YEARS AGO)
     Route: 048
  8. QUETIAPINA [Concomitant]
     Active Substance: QUETIAPINE
     Indication: PSYCHIATRIC SYMPTOM
     Dosage: 0.25 DF, PRN
     Route: 048

REACTIONS (26)
  - Feeling abnormal [Unknown]
  - Blood pressure increased [Unknown]
  - Depression [Unknown]
  - Cough [Recovered/Resolved]
  - Back pain [Recovered/Resolved]
  - Off label use [Unknown]
  - Gait disturbance [Unknown]
  - Crying [Unknown]
  - Wrong technique in product usage process [Not Recovered/Not Resolved]
  - Accident at work [Unknown]
  - Emotional disorder [Recovered/Resolved]
  - Muscle tightness [Unknown]
  - Depressed mood [Not Recovered/Not Resolved]
  - Headache [Recovered/Resolved]
  - Mental disorder [Recovered/Resolved]
  - Insomnia [Unknown]
  - Product prescribing error [Unknown]
  - Hypertensive crisis [Recovered/Resolved]
  - Anxiety [Recovered/Resolved]
  - Emotional disorder [Recovered/Resolved]
  - Memory impairment [Unknown]
  - Influenza [Not Recovered/Not Resolved]
  - Arthralgia [Recovered/Resolved]
  - Asphyxia [Recovered/Resolved]
  - Tachycardia [Recovered/Resolved]
  - General physical health deterioration [Not Recovered/Not Resolved]

NARRATIVE: CASE EVENT DATE: 201811
